FAERS Safety Report 10615251 (Version 1)
Quarter: 2014Q4

REPORT INFORMATION
  Report Type: Spontaneous
  Country: US (occurrence: None)
  Receive Date: 20141125
  Receipt Date: 20141125
  Transmission Date: 20150529
  Serious: Yes (Disabling)
  Sender: FDA-Public Use
  Company Number: None

PATIENT
  Age: 47 Year
  Sex: Female
  Weight: 99.79 kg

DRUGS (2)
  1. LEVAQUIN [Suspect]
     Active Substance: LEVOFLOXACIN
     Indication: BRONCHITIS
     Dosage: ONE, ONCE DAILY, TAKEN BY MOUTH
     Route: 048
     Dates: start: 20141116, end: 20141119
  2. LEVAQUIN [Suspect]
     Active Substance: LEVOFLOXACIN
     Indication: SINUSITIS
     Dosage: ONE, ONCE DAILY, TAKEN BY MOUTH
     Route: 048
     Dates: start: 20141116, end: 20141119

REACTIONS (10)
  - Mobility decreased [None]
  - Tendonitis [None]
  - Musculoskeletal pain [None]
  - Viral infection [None]
  - Dry mouth [None]
  - Abasia [None]
  - Arthralgia [None]
  - Pain [None]
  - Back pain [None]
  - Pain in extremity [None]

NARRATIVE: CASE EVENT DATE: 20141119
